FAERS Safety Report 8321124-2 (Version None)
Quarter: 2012Q1

REPORT INFORMATION
  Report Type: 
  Country: None (occurrence: None)
  Receive Date: 20120315
  Receipt Date: 20110222
  Transmission Date: 20120608
  Serious: No
  Sender: FDA-Public Use
  Company Number: PHHY2011US010327

PATIENT
  Age: 32 Year
  Sex: Female
  Weight: 99.8 kg

DRUGS (6)
  1. TOPAMAX [Concomitant]
  2. AMITRIPTYLINE HCL [Concomitant]
  3. GILENYA [Suspect]
     Indication: RELAPSING-REMITTING MULTIPLE SCLEROSIS
     Dosage: 0.5 MG, QD, ORAL
     Route: 048
     Dates: start: 20101111, end: 20110208
  4. LEXAPRO [Concomitant]
  5. IMITREX ^CERENEX^ (SUMATRIPTAN SUCCINATE) [Concomitant]
  6. BACLOFEN [Concomitant]

REACTIONS (2)
  - JOINT SWELLING [None]
  - OEDEMA PERIPHERAL [None]
